FAERS Safety Report 12846850 (Version 2)
Quarter: 2016Q4

REPORT INFORMATION
  Report Type: Report from Study
  Country: US (occurrence: US)
  Receive Date: 20161014
  Receipt Date: 20161116
  Transmission Date: 20170207
  Serious: Yes (Other)
  Sender: FDA-Public Use
  Company Number: US-ROCHE-1841083

PATIENT
  Age: 17 Year
  Sex: Female
  Weight: 80 kg

DRUGS (6)
  1. LEVOTHYROXINE. [Concomitant]
     Active Substance: LEVOTHYROXINE
     Route: 065
     Dates: start: 2011
  2. MOMETASONE [Concomitant]
     Active Substance: MOMETASONE
     Indication: INJECTION SITE REACTION
     Route: 061
     Dates: start: 2013
  3. XOLAIR [Suspect]
     Active Substance: OMALIZUMAB
     Indication: RUBBER SENSITIVITY
     Dosage: FOR 3 YEARS
     Route: 058
     Dates: start: 2013
  4. BENADRYL [Concomitant]
     Active Substance: DIPHENHYDRAMINE HYDROCHLORIDE
     Indication: HYPERSENSITIVITY
     Route: 065
     Dates: start: 2006
  5. EPIPEN [Concomitant]
     Active Substance: EPINEPHRINE
     Indication: HYPERSENSITIVITY
     Route: 058
  6. CHLORTRIMETON [Concomitant]
     Active Substance: CHLORPHENIRAMINE MALEATE
     Indication: HYPERSENSITIVITY
     Route: 065
     Dates: start: 2006

REACTIONS (6)
  - Anaphylactic reaction [Recovered/Resolved with Sequelae]
  - Intercepted drug prescribing error [Unknown]
  - Feeling abnormal [Recovered/Resolved]
  - Drug effect decreased [Unknown]
  - Blood immunoglobulin E increased [Unknown]
  - Off label use [Unknown]

NARRATIVE: CASE EVENT DATE: 2013
